FAERS Safety Report 7411042-6 (Version None)
Quarter: 2011Q2

REPORT INFORMATION
  Report Type: 
  Country: None (occurrence: None)
  Receive Date: 20110405
  Receipt Date: 20110317
  Transmission Date: 20111010
  Serious: Yes (Death)
  Sender: FDA-Public Use
  Company Number: 2011P1005208

PATIENT
  Age: 38 Year
  Sex: Male

DRUGS (5)
  1. CITALOPRAM (NO PREF. NAME) [Suspect]
     Dosage: ; PO, ; PARN
  2. ETHANOL (NO PREF. NAME) [Suspect]
     Dosage: ; PO, ; PARN
  3. COCAINE (NO PREF. NAME) [Suspect]
     Dosage: ; PO, ; PARN
  4. OPIOID (NO PREF. NAME) [Suspect]
     Dosage: ; PO, ; PARN
  5. BENZODIAZEPINE (NO PREF. NAME) [Suspect]
     Dosage: ; PO, ; PARN

REACTIONS (1)
  - DRUG ABUSE [None]
